FAERS Safety Report 22203862 (Version 11)
Quarter: 2024Q3

REPORT INFORMATION
  Report Type: Report from Study
  Country: FR (occurrence: FR)
  Receive Date: 20230412
  Receipt Date: 20240904
  Transmission Date: 20241017
  Serious: Yes (Other)
  Sender: BAUSCH AND LOMB
  Company Number: FR-SA-SAC20230327000830

PATIENT
  Age: 75 Year
  Sex: Female
  Weight: 59 kg

DRUGS (46)
  1. DEXAMETHASONE [Suspect]
     Active Substance: DEXAMETHASONE
     Indication: Plasma cell myeloma
     Dosage: 20 MG, QW
     Route: 065
     Dates: start: 20230109, end: 20230203
  2. DEXAMETHASONE [Suspect]
     Active Substance: DEXAMETHASONE
     Dosage: 20 MG, QW
     Route: 065
     Dates: start: 20230210, end: 20230303
  3. DEXAMETHASONE [Suspect]
     Active Substance: DEXAMETHASONE
     Dosage: 20 MG, QW
     Route: 065
     Dates: start: 20230310, end: 20230331
  4. DEXAMETHASONE [Suspect]
     Active Substance: DEXAMETHASONE
     Dosage: 20 MG, QW
     Route: 065
     Dates: start: 20230407, end: 20230428
  5. ISATUXIMAB [Suspect]
     Active Substance: ISATUXIMAB
     Indication: Plasma cell myeloma
     Dosage: 610 MG, QW
     Route: 065
     Dates: start: 20230109, end: 20230203
  6. ISATUXIMAB [Suspect]
     Active Substance: ISATUXIMAB
     Dosage: 610 MG, QW
     Route: 065
     Dates: start: 20230210, end: 20230223
  7. ISATUXIMAB [Suspect]
     Active Substance: ISATUXIMAB
     Dosage: 610 MG, BIW
     Route: 065
     Dates: start: 20230310, end: 20230324
  8. ISATUXIMAB [Suspect]
     Active Substance: ISATUXIMAB
     Dosage: 610 MG, BIW
     Route: 065
     Dates: start: 20230407, end: 20230421
  9. POMALIDOMIDE [Suspect]
     Active Substance: POMALIDOMIDE
     Indication: Plasma cell myeloma
     Dosage: 4 MG, QD
     Route: 065
     Dates: start: 20230109, end: 20230129
  10. POMALIDOMIDE [Suspect]
     Active Substance: POMALIDOMIDE
     Dosage: 4 MG, QD
     Route: 065
     Dates: start: 20230210, end: 20230302
  11. POMALIDOMIDE [Suspect]
     Active Substance: POMALIDOMIDE
     Dosage: 4 MG, QD
     Route: 065
     Dates: start: 20230310, end: 20230330
  12. POMALIDOMIDE [Suspect]
     Active Substance: POMALIDOMIDE
     Dosage: 4 MG, QD
     Route: 065
     Dates: start: 20230407, end: 20230427
  13. BORTEZOMIB [Suspect]
     Active Substance: BORTEZOMIB
     Indication: Product used for unknown indication
     Route: 065
  14. BORTEZOMIB [Suspect]
     Active Substance: BORTEZOMIB
     Dosage: 700 UG/M2, QW
     Route: 065
     Dates: start: 20230727, end: 20230811
  15. BORTEZOMIB [Suspect]
     Active Substance: BORTEZOMIB
     Dosage: 1300 UG/M2, QW
     Route: 065
     Dates: start: 20230407, end: 20230428
  16. BORTEZOMIB [Suspect]
     Active Substance: BORTEZOMIB
     Dosage: 1300 UG/M2, QW
     Route: 065
     Dates: start: 20230505, end: 20230512
  17. BORTEZOMIB [Suspect]
     Active Substance: BORTEZOMIB
     Dosage: 700 UG/M2, QW
     Route: 065
     Dates: start: 20230825, end: 20230922
  18. BORTEZOMIB [Suspect]
     Active Substance: BORTEZOMIB
     Dosage: QW
     Route: 065
     Dates: start: 20230922, end: 20230922
  19. BORTEZOMIB [Suspect]
     Active Substance: BORTEZOMIB
     Dosage: 1 MG/M2, QW
     Route: 065
     Dates: start: 20230602, end: 20230616
  20. BORTEZOMIB [Suspect]
     Active Substance: BORTEZOMIB
     Dosage: 1 MG/M2, QW
     Route: 065
     Dates: start: 20230519, end: 20230526
  21. BORTEZOMIB [Suspect]
     Active Substance: BORTEZOMIB
     Dosage: 1 MG/M2, QW
     Route: 065
     Dates: start: 20230630, end: 20230630
  22. VELCADE [Suspect]
     Active Substance: BORTEZOMIB
     Indication: Plasma cell myeloma
     Route: 065
  23. BISOPROLOL [Concomitant]
     Active Substance: BISOPROLOL\BISOPROLOL FUMARATE
     Indication: Cardiac disorder
     Dosage: UNK
     Dates: start: 2020
  24. ESOMEPRAZOLE [Concomitant]
     Active Substance: ESOMEPRAZOLE
     Indication: Prophylaxis
     Dosage: UNK
     Dates: start: 2020
  25. OROCAL D [Concomitant]
     Indication: Prophylaxis
     Dosage: UNK
  26. DEXAMETHASONE SODIUM PHOSPHATE [Concomitant]
     Active Substance: DEXAMETHASONE PHOSPHATE\DEXAMETHASONE SODIUM PHOSPHATE
     Indication: Prophylaxis
     Dosage: UNK
  27. ACETAMINOPHEN [Concomitant]
     Active Substance: ACETAMINOPHEN
     Indication: Prophylaxis
     Dosage: UNK
     Dates: start: 20230109
  28. LEVOCABASTINE HYDROCHLORIDE [Concomitant]
     Active Substance: LEVOCABASTINE HYDROCHLORIDE
     Indication: Prophylaxis
     Dosage: UNK
  29. BACTRIM [Concomitant]
     Active Substance: SULFAMETHOXAZOLE\TRIMETHOPRIM
     Indication: Infection prophylaxis
     Dosage: UNK
     Dates: start: 20230109
  30. CRESTOR [Concomitant]
     Active Substance: ROSUVASTATIN CALCIUM
     Indication: Dyslipidaemia
     Dosage: UNK
     Dates: start: 2020
  31. PERINDOPRIL [Concomitant]
     Active Substance: PERINDOPRIL
     Indication: Cardiac disorder
     Dosage: UNK
     Dates: start: 2020
  32. KARDEGIC [Concomitant]
     Active Substance: ASPIRIN DL-LYSINE
     Indication: Cardiac disorder
     Dosage: UNK
     Dates: start: 2020
  33. HYALURONATE SODIUM [Concomitant]
     Active Substance: HYALURONATE SODIUM
     Indication: Prophylaxis
     Dosage: UNK
  34. LOPERAMIDE [Concomitant]
     Active Substance: LOPERAMIDE
     Indication: Diarrhoea
     Dosage: UNK
  35. ELIQUIS [Concomitant]
     Active Substance: APIXABAN
     Indication: Prophylaxis
     Dosage: UNK
     Dates: start: 20230109
  36. LEUCOVORIN CALCIUM [Concomitant]
     Active Substance: LEUCOVORIN CALCIUM
     Indication: Haematotoxicity
     Dosage: UNK
     Dates: start: 20230109
  37. RANITIDINE [Concomitant]
     Active Substance: RANITIDINE
     Indication: Prophylaxis
     Dosage: UNK
     Dates: start: 20230109
  38. POLARAMINE [Concomitant]
     Active Substance: DEXCHLORPHENIRAMINE MALEATE
     Indication: Prophylaxis
     Dosage: UNK
     Dates: start: 20230109
  39. VALACYCLOVIR HYDROCHLORIDE [Concomitant]
     Active Substance: VALACYCLOVIR HYDROCHLORIDE
     Indication: Infection prophylaxis
     Dosage: UNK
  40. FILGRASTIM [Concomitant]
     Active Substance: FILGRASTIM
     Indication: Product used for unknown indication
     Dosage: UNK
     Dates: start: 20230621, end: 20230623
  41. CALCIUM CARBONATE [Concomitant]
     Active Substance: CALCIUM CARBONATE
     Indication: Vitamin D deficiency
     Dosage: UNK
  42. PYRIDOXINE [Concomitant]
     Active Substance: PYRIDOXINE
     Indication: Product used for unknown indication
     Dosage: UNK
     Dates: start: 20230519, end: 20230727
  43. THIAMINE HYDROCHLORIDE [Concomitant]
     Active Substance: THIAMINE HYDROCHLORIDE
     Indication: Product used for unknown indication
     Dosage: UNK
     Dates: start: 20230519, end: 20230727
  44. ESCARGOT [Concomitant]
     Active Substance: ESCARGOT
     Indication: Product used for unknown indication
     Dosage: UNK
     Dates: start: 20020504, end: 20230509
  45. DEXAMETHASONE SODIUM PHOSPHATE\NEOMYCIN SULFATE [Concomitant]
     Active Substance: DEXAMETHASONE SODIUM PHOSPHATE\NEOMYCIN SULFATE
     Indication: Product used for unknown indication
     Dosage: UNK
     Dates: start: 20240221, end: 20240306
  46. ATROPINE [Concomitant]
     Active Substance: ATROPINE
     Indication: Product used for unknown indication
     Dates: start: 20240221, end: 20240226

REACTIONS (32)
  - Neutropenia [Recovered/Resolved]
  - Neutropenia [Recovered/Resolved]
  - Neutropenia [Recovered/Resolved]
  - Neutropenia [Recovered/Resolved]
  - Neutropenia [Recovered/Resolved]
  - Neutropenia [Recovered/Resolved]
  - Neutropenia [Recovered/Resolved]
  - Neutropenia [Recovered/Resolved]
  - Neutropenia [Recovered/Resolved]
  - Neutropenia [Recovered/Resolved]
  - Neutropenia [Recovered/Resolved]
  - Neutropenia [Recovered/Resolved]
  - Neutropenia [Not Recovered/Not Resolved]
  - Asthenia [Recovered/Resolved]
  - Vitamin B1 deficiency [Recovered/Resolved]
  - Vitamin B6 deficiency [Recovered/Resolved]
  - Fall [Recovered/Resolved]
  - Asthenia [Not Recovered/Not Resolved]
  - Infusion related reaction [Recovered/Resolved]
  - Ataxia [Not Recovered/Not Resolved]
  - Chills [Recovered/Resolved]
  - Nervousness [Recovered/Resolved]
  - Asthenia [Not Recovered/Not Resolved]
  - Infusion related reaction [Recovered/Resolved]
  - Asthenia [Recovered/Resolved]
  - Ataxia [Not Recovered/Not Resolved]
  - Constipation [Recovered/Resolved]
  - Diarrhoea [Not Recovered/Not Resolved]
  - Peripheral sensory neuropathy [Not Recovered/Not Resolved]
  - Abdominal distension [Recovered/Resolved]
  - Rhinitis [Recovered/Resolved]
  - Rhinitis [Recovered/Resolved]

NARRATIVE: CASE EVENT DATE: 20230109
